FAERS Safety Report 19429935 (Version 1)
Quarter: 2021Q2

REPORT INFORMATION
  Report Type: Report from Study
  Country: FR (occurrence: FR)
  Receive Date: 20210617
  Receipt Date: 20210617
  Transmission Date: 20210717
  Serious: Yes (Other)
  Sender: FDA-Public Use
  Company Number: FR-DAIICHI SANKYO (CHINA) HOLDINGS CO., LTD.-DSE-2021-118284

PATIENT
  Sex: Female

DRUGS (1)
  1. TRASTUZUMAB DERUXTECAN. [Suspect]
     Active Substance: TRASTUZUMAB DERUXTECAN
     Indication: HER2 POSITIVE BREAST CANCER
     Dosage: 1 DF, CYCLIC, ONCE PER 21?DAY CYCLE
     Route: 042

REACTIONS (1)
  - Lung disorder [Unknown]
